FAERS Safety Report 6765800-1 (Version None)
Quarter: 2010Q2

REPORT INFORMATION
  Report Type: 
  Country: None (occurrence: None)
  Receive Date: 20100609
  Receipt Date: 20100525
  Transmission Date: 20101027
  Serious: Yes (Life-Threatening, Hospitalization)
  Sender: FDA-Public Use
  Company Number: AUR-APL-2010-00895

PATIENT
  Age: 64 Year
  Sex: Female
  Weight: 125 kg

DRUGS (8)
  1. METOPROLOL [Suspect]
     Dosage: 25MG - BID
  2. LISINOPRIL [Suspect]
     Dosage: 10 MG - DAILY
  3. AROMASIN [Suspect]
     Indication: BREAST CANCER
     Dosage: 25MG - DAILY - ORAL
     Route: 048
     Dates: start: 20060131, end: 20100305
  4. TRIAMTERENE AND HYDROCHLOROTHIAZIDE [Suspect]
     Dosage: 25MG - DAILY
  5. ZOCOR [Suspect]
     Dosage: 20MG - DAILY
  6. AVANDAMET [Suspect]
     Dosage: 2MG/500MG - BID
  7. FOSAMAX [Suspect]
     Dosage: 70MG - ONCE WEEKLY
  8. CALCIUM/VIT D 600MG TABLETS [Concomitant]

REACTIONS (2)
  - PULMONARY EMBOLISM [None]
  - VERTIGO [None]
